FAERS Safety Report 4559708-X (Version None)
Quarter: 2005Q1

REPORT INFORMATION
  Report Type: 
  Country: None (occurrence: None)
  Receive Date: 20050107
  Receipt Date: 20041111
  Transmission Date: 20050727
  Serious: Yes (Death)
  Sender: FDA-Public Use
  Company Number: HQWYE396411NOV04

PATIENT
  Sex: Male

DRUGS (1)
  1. CORDARONE [Suspect]
     Dosage: UNKNOWN DOSE, FREQUENCY, UNKNOWN

REACTIONS (5)
  - ANHEDONIA [None]
  - ANXIETY [None]
  - INJURY [None]
  - PAIN [None]
  - PULMONARY FIBROSIS [None]
